FAERS Safety Report 12677315 (Version 2)
Quarter: 2016Q3

REPORT INFORMATION
  Report Type: Spontaneous
  Country: FR (occurrence: FR)
  Receive Date: 20160823
  Receipt Date: 20160902
  Transmission Date: 20161109
  Serious: Yes (Hospitalization)
  Sender: FDA-Public Use
  Company Number: FR-PFIZER INC-2016393525

PATIENT
  Age: 68 Year
  Sex: Female

DRUGS (15)
  1. LASILIX SPECIAL /00032601/ [Concomitant]
     Active Substance: FUROSEMIDE
     Dosage: 500 MG, 1X/DAY
     Route: 048
  2. ZOLOFT [Concomitant]
     Active Substance: SERTRALINE HYDROCHLORIDE
     Dosage: UNK
     Route: 048
  3. CRESTOR [Concomitant]
     Active Substance: ROSUVASTATIN CALCIUM
     Dosage: UNK
     Route: 048
  4. POLARAMINE [Suspect]
     Active Substance: DEXCHLORPHENIRAMINE MALEATE
     Indication: PREMEDICATION
     Dosage: 1 DF, CYCLIC
     Route: 042
     Dates: start: 201401
  5. INSPRA [Concomitant]
     Active Substance: EPLERENONE
     Dosage: 50 MG, 1X/DAY
     Route: 048
  6. LASILIX SPECIAL /00032601/ [Concomitant]
     Active Substance: FUROSEMIDE
     Dosage: 5 MG, 1X/DAY
     Route: 048
  7. TEMERIT [Concomitant]
     Active Substance: NEBIVOLOL
     Dosage: 5 MG, 1X/DAY
     Route: 048
  8. RANITIDINE. [Suspect]
     Active Substance: RANITIDINE
     Indication: PREMEDICATION
     Dosage: 50 MG, CYCLIC
     Route: 042
     Dates: start: 201401
  9. PREVISCAN /00261401/ [Concomitant]
     Active Substance: PENTOXIFYLLINE
     Dosage: 20 MG, 1X/DAY
     Route: 048
  10. TAXOL [Concomitant]
     Active Substance: PACLITAXEL
     Indication: OVARIAN CANCER
     Dosage: UNK, CYCLIC
     Dates: start: 20140110
  11. SOLU-MEDROL [Suspect]
     Active Substance: METHYLPREDNISOLONE SODIUM SUCCINATE
     Indication: PREMEDICATION
     Dosage: 60 MG, CYCLIC
     Route: 042
     Dates: start: 201401
  12. EUPANTOL [Concomitant]
     Active Substance: PANTOPRAZOLE SODIUM
     Dosage: 20 MG, 1X/DAY
     Route: 048
  13. INSPRA [Concomitant]
     Active Substance: EPLERENONE
     Dosage: 5 MG, 1X/DAY
     Route: 048
  14. ZOPHREN /00955302/ [Suspect]
     Active Substance: ONDANSETRON
     Indication: PREMEDICATION
     Dosage: 1 DF, CYCLIC
     Route: 042
     Dates: start: 201401
  15. CARBOPLATIN. [Concomitant]
     Active Substance: CARBOPLATIN
     Indication: OVARIAN CANCER
     Dosage: UNK, CYCLIC
     Dates: start: 20140110

REACTIONS (1)
  - Stress cardiomyopathy [Recovered/Resolved]

NARRATIVE: CASE EVENT DATE: 20140911
